FAERS Safety Report 6769320-X (Version None)
Quarter: 2010Q2

REPORT INFORMATION
  Report Type: 
  Country: None (occurrence: None)
  Receive Date: 20100615
  Receipt Date: 20100513
  Transmission Date: 20101027
  Serious: Yes (Hospitalization, Disabling)
  Sender: FDA-Public Use
  Company Number: GB-RANBAXY-2010RR-34102

PATIENT
  Age: 70 Year
  Sex: Male

DRUGS (15)
  1. ASPIRIN [Suspect]
     Dosage: 300 MG, UNK
  2. ASPIRIN [Suspect]
     Dosage: 75 MG, QD
  3. CIPROFLOXACIN [Suspect]
     Indication: CELLULITIS
     Dosage: 750 MG, BID
     Route: 048
  4. CLOPIDOGREL [Suspect]
     Dosage: 300 MG, UNK
     Route: 048
  5. CLOPIDOGREL [Suspect]
     Dosage: 75 MG, QD
  6. MEROPENEM [Suspect]
     Indication: CELLULITIS
     Dosage: 2 G, BID
     Route: 042
  7. METRONIDAZOLE [Suspect]
     Indication: CELLULITIS
     Dosage: 250 MG, QID
     Route: 048
  8. METRONIDAZOLE [Suspect]
     Dosage: 400 MG, TID
     Route: 048
  9. TEICOPLANIN [Suspect]
     Indication: CELLULITIS
     Dosage: 400 MG, QD
     Route: 030
  10. WARFARIN SODIUM [Suspect]
     Indication: PULMONARY EMBOLISM
  11. ERYTHROMYCIN [Suspect]
     Indication: CELLULITIS
     Dosage: 250 MG, QID
     Route: 048
  12. VITAMIN K TAB [Concomitant]
  13. HEPARIN [Concomitant]
     Route: 042
  14. MEROPENEM [Concomitant]
     Dosage: 2 G, BID
     Route: 051
  15. TEICOPLANIN [Concomitant]
     Dosage: 400 MG, QD
     Route: 030

REACTIONS (5)
  - COAGULATION TIME PROLONGED [None]
  - DRUG INTERACTION [None]
  - HYPHAEMA [None]
  - INTERNATIONAL NORMALISED RATIO INCREASED [None]
  - INTRAOCULAR PRESSURE INCREASED [None]
